FAERS Safety Report 10875236 (Version 1)
Quarter: 2015Q1

REPORT INFORMATION
  Report Type: Spontaneous
  Country: GR (occurrence: GR)
  Receive Date: 20150227
  Receipt Date: 20150227
  Transmission Date: 20150721
  Serious: Yes (Other)
  Sender: FDA-Public Use
  Company Number: GR-BAYER-2015-027031

PATIENT
  Age: 30 Year
  Sex: Female

DRUGS (9)
  1. ENOXAPARIN [Suspect]
     Active Substance: ENOXAPARIN
     Indication: ANTIPHOSPHOLIPID SYNDROME
     Dosage: THERAPEUTIC DOSES
  2. ENOXAPARIN [Suspect]
     Active Substance: ENOXAPARIN
     Indication: ANTIPHOSPHOLIPID SYNDROME
     Dosage: 0.4
  3. ENOXAPARIN [Suspect]
     Active Substance: ENOXAPARIN
     Indication: ANTIPHOSPHOLIPID SYNDROME
     Dosage: UNK
  4. PRAVASTATIN [Suspect]
     Active Substance: PRAVASTATIN\PRAVASTATIN SODIUM
     Indication: ANTIPHOSPHOLIPID SYNDROME
     Dosage: 20 MG, UNK
  5. PRAVASTATIN [Suspect]
     Active Substance: PRAVASTATIN\PRAVASTATIN SODIUM
     Indication: PRE-ECLAMPSIA
  6. ACETYLSALICYLIC ACID({=100 MG) [Suspect]
     Active Substance: ASPIRIN
     Indication: ANTIPHOSPHOLIPID SYNDROME
     Dosage: 100 MG, QD
  7. ACETYLSALICYLIC ACID({=100 MG) [Suspect]
     Active Substance: ASPIRIN
     Indication: ANTIPHOSPHOLIPID SYNDROME
     Dosage: UNK
  8. HEPARIN [Suspect]
     Active Substance: HEPARIN SODIUM
     Indication: ANTIPHOSPHOLIPID SYNDROME
     Dosage: UNK
  9. ENOXAPARIN [Suspect]
     Active Substance: ENOXAPARIN
     Indication: ANTIPHOSPHOLIPID SYNDROME
     Dosage: 0.6 QD

REACTIONS (5)
  - Pre-eclampsia [None]
  - Hypertension [None]
  - Proteinuria [Recovering/Resolving]
  - Drug ineffective for unapproved indication [None]
  - Exposure during pregnancy [None]
